FAERS Safety Report 16092736 (Version 4)
Quarter: 2020Q3

REPORT INFORMATION
  Report Type: Spontaneous
  Country: FR (occurrence: FR)
  Receive Date: 20190319
  Receipt Date: 20200707
  Transmission Date: 20201102
  Serious: Yes (Hospitalization, Other)
  Sender: FDA-Public Use
  Company Number: FR-AUROBINDO-AUR-APL-2018-060733

PATIENT
  Age: 4 Day
  Sex: Male
  Weight: 2.03 kg

DRUGS (19)
  1. PREDNISONE. [Suspect]
     Active Substance: PREDNISONE
     Indication: PRODUCT USED FOR UNKNOWN INDICATION
     Dosage: 40 MILLIGRAM, ONCE A DAY(FROM THE DIAGNOSIS UNTIL 1 WEEK AFTER THE FIRST ABVD)
     Route: 064
  2. VINBLASTINE [Interacting]
     Active Substance: VINBLASTINE
     Dosage: 5 MILLIGRAM/SQ. METER
     Route: 064
     Dates: start: 20171108
  3. DACARBAZINE. [Interacting]
     Active Substance: DACARBAZINE
     Dosage: 730 MILLIGRAM, IN TOTAL ONCE AT DAY 1
     Route: 064
  4. ONDANSETRON [Interacting]
     Active Substance: ONDANSETRON
     Indication: PROPHYLAXIS OF NAUSEA AND VOMITING
     Dosage: 16 UNK, ONCE A DAY
     Route: 064
     Dates: start: 20171108
  5. AMOXICILLIN. [Concomitant]
     Active Substance: AMOXICILLIN
     Indication: PRODUCT USED FOR UNKNOWN INDICATION
     Dosage: UNK
     Route: 064
  6. VINBLASTINE [Interacting]
     Active Substance: VINBLASTINE
     Indication: HODGKIN^S DISEASE
     Dosage: 10 MILLIGRAM,ON DAY 1 AND DAY 15 OF A 28 DAY CYCLE
     Route: 064
  7. DACARBAZINE. [Interacting]
     Active Substance: DACARBAZINE
     Indication: HODGKIN^S DISEASE
     Dosage: 730 MILLIGRAM   IN TOTAL ONCE AT DAY 15
     Route: 064
  8. DOXORUBICIN POWDER FOR SOLUTION FOR INFUSION [Interacting]
     Active Substance: DOXORUBICIN
     Indication: HODGKIN^S DISEASE
     Dosage: 48 MILLIGRAM ON DAY 1 AND DAY 15 OF A 28 DAY CYCLE
     Route: 064
  9. CAFFEINE. [Concomitant]
     Active Substance: CAFFEINE
     Indication: PRODUCT USED FOR UNKNOWN INDICATION
     Dosage: UNK
     Route: 042
  10. CYCLOPHOSPHAMIDE. [Interacting]
     Active Substance: CYCLOPHOSPHAMIDE
     Indication: PRODUCT USED FOR UNKNOWN INDICATION
     Dosage: UNK
     Route: 064
  11. LANSOPRAZOLE. [Concomitant]
     Active Substance: LANSOPRAZOLE
     Indication: PRODUCT USED FOR UNKNOWN INDICATION
     Dosage: 30 MILLIGRAM, ONCE A DAY
     Route: 064
  12. ENOXAPARIN [Concomitant]
     Active Substance: ENOXAPARIN
     Indication: PRODUCT USED FOR UNKNOWN INDICATION
     Dosage: 4000 INTERNATIONAL UNIT, TWO TIMES A DAY
     Route: 064
  13. DOXORUBICIN POWDER FOR SOLUTION FOR INFUSION [Interacting]
     Active Substance: DOXORUBICIN
     Dosage: 25 MILLIGRAM/SQ. METER
     Route: 064
     Dates: start: 20171108
  14. BLEOMYCIN [Interacting]
     Active Substance: BLEOMYCIN SULFATE
     Indication: HODGKIN^S DISEASE
     Dosage: 19.2 MILLIGRAM, ON DAY 1 AND DAY 15 OF A 28 DAY CYCLE
     Route: 064
  15. RITUXIMAB. [Interacting]
     Active Substance: RITUXIMAB
     Indication: PRODUCT USED FOR UNKNOWN INDICATION
     Dosage: UNK
     Route: 064
  16. VALACICLOVIR [Interacting]
     Active Substance: VALACYCLOVIR HYDROCHLORIDE
     Indication: PRODUCT USED FOR UNKNOWN INDICATION
     Dosage: 500 MILLIGRAM, ONCE A DAY
     Route: 064
  17. DEXAMETHASONE. [Concomitant]
     Active Substance: DEXAMETHASONE
     Indication: PROPHYLAXIS OF NAUSEA AND VOMITING
     Dosage: 10 MILLIGRAM
     Route: 064
     Dates: start: 20171108
  18. BLEOMYCIN [Interacting]
     Active Substance: BLEOMYCIN SULFATE
     Dosage: 10 MILLIGRAM/SQ. METER
     Route: 064
     Dates: start: 20171108
  19. DACARBAZINE. [Interacting]
     Active Substance: DACARBAZINE
     Dosage: 375 MILLIGRAM/SQ. METER
     Route: 064
     Dates: start: 20171108

REACTIONS (8)
  - Cardiac dysfunction [Recovered/Resolved]
  - Foetal exposure during pregnancy [Recovered/Resolved]
  - Cardiotoxicity [Recovered/Resolved]
  - Troponin increased [Recovered/Resolved]
  - Premature baby [Unknown]
  - Cardiomyopathy [Recovered/Resolved]
  - Drug interaction [Recovered/Resolved]
  - Off label use [Unknown]

NARRATIVE: CASE EVENT DATE: 2017
